FAERS Safety Report 7431959-6 (Version None)
Quarter: 2011Q2

REPORT INFORMATION
  Report Type: 
  Country: None (occurrence: None)
  Receive Date: 20110422
  Receipt Date: 20110418
  Transmission Date: 20111010
  Serious: No
  Sender: FDA-Public Use
  Company Number: US-ASTRAZENECA-2008UW09558

PATIENT
  Age: 24640 Day
  Sex: Male
  Weight: 97.5 kg

DRUGS (7)
  1. LOPERAMIDE [Concomitant]
     Dates: start: 20040402
  2. SEROQUEL [Suspect]
     Indication: SLEEP DISORDER
     Route: 048
     Dates: start: 20050301, end: 20070101
  3. LIPITOR [Concomitant]
     Dates: start: 20050818
  4. UNIVASC [Concomitant]
     Dates: start: 20040412
  5. ATENOLOL [Concomitant]
     Dates: start: 20050728
  6. ZYPREXA [Concomitant]
     Dates: start: 20041117
  7. SEROQUEL [Suspect]
     Route: 048
     Dates: start: 20050310

REACTIONS (1)
  - TYPE 2 DIABETES MELLITUS [None]
